FAERS Safety Report 5015470-8 (Version None)
Quarter: 2006Q2

REPORT INFORMATION
  Report Type: 
  Country: None (occurrence: None)
  Receive Date: 20060530
  Receipt Date: 20060530
  Transmission Date: 20061013
  Serious: Yes (Hospitalization)
  Sender: FDA-Public Use
  Company Number: None

PATIENT
  Age: 70 Year
  Sex: Male
  Weight: 83.9154 kg

DRUGS (1)
  1. METHOTREXATE [Suspect]
     Indication: DEMYELINATING POLYNEUROPATHY
     Dosage: 7.5 MG - M-W-F    (OUTPATIENT)

REACTIONS (8)
  - DIALYSIS [None]
  - MUCOSAL INFLAMMATION [None]
  - PAIN OF SKIN [None]
  - PANCYTOPENIA [None]
  - RASH ERYTHEMATOUS [None]
  - RENAL FAILURE [None]
  - SEPSIS [None]
  - TREATMENT NONCOMPLIANCE [None]
